FAERS Safety Report 9803546 (Version 2)
Quarter: 2014Q1

REPORT INFORMATION
  Report Type: Spontaneous
  Country: CN (occurrence: None)
  Receive Date: 20140103
  Receipt Date: 20140103
  Transmission Date: 20141002
  Serious: Yes (Death)
  Sender: FDA-Public Use
  Company Number: CN-JNJFOC-20131215430

PATIENT
  Age: 66 Year
  Sex: Male
  Weight: 78 kg

DRUGS (11)
  1. DECITABINE (DECITABINE) LYOPHILIZED POWDER [Suspect]
     Indication: ACUTE MYELOID LEUKAEMIA
     Route: 042
     Dates: start: 20130927, end: 20131006
  2. TAZOCIN (PIP/TAZO) [Concomitant]
  3. MEROPENEM (MEROPENEM) [Concomitant]
  4. CEFTAZIDIME (CEFTAZIDIME) [Concomitant]
  5. ITRACONZAOLE (ITRACONAZOLE) [Concomitant]
  6. VORICONAZOLE (VORICONAZOLE) [Concomitant]
  7. MAXIPIME (CEFEPIME HYDROCHLORIDE) [Concomitant]
  8. CIPROFLOXACIN (CIPROFLOXACIN) [Concomitant]
  9. MOXIFLOXACIN (MOXIFLOXACIN) [Concomitant]
  10. SULPERAZONE (SULPERAZON) [Concomitant]
  11. OMEPRAZOLE (OMEPRAZOLE) [Concomitant]

REACTIONS (6)
  - Lung infection [None]
  - Pseudomonas infection [None]
  - Aspergillus infection [None]
  - Tonsillitis [None]
  - Pneumonia [None]
  - Respiratory failure [None]
